FAERS Safety Report 22607054 (Version 1)
Quarter: 2023Q2

REPORT INFORMATION
  Report Type: Spontaneous
  Country: US (occurrence: US)
  Receive Date: 20230615
  Receipt Date: 20230615
  Transmission Date: 20230721
  Serious: Yes (Hospitalization, Other)
  Sender: FDA-Public Use
  Company Number: US-PFIZER INC-PV202300105629

PATIENT
  Age: 64 Year
  Sex: Female
  Weight: 73.016 kg

DRUGS (6)
  1. AROMASIN [Suspect]
     Active Substance: EXEMESTANE
     Indication: Breast cancer female
     Dosage: 25 MG, 1X/DAY (1 TABLET ORALLY EVERY DAY. TAKE ONCE DAILY AFTER A MEAL)
     Route: 048
     Dates: start: 202005
  2. AROMASIN [Suspect]
     Active Substance: EXEMESTANE
     Indication: Bone cancer metastatic
  3. AROMASIN [Suspect]
     Active Substance: EXEMESTANE
     Indication: Adenocarcinoma
  4. AFINITOR [Suspect]
     Active Substance: EVEROLIMUS
     Dosage: UNK
     Dates: start: 202005
  5. AFINITOR [Suspect]
     Active Substance: EVEROLIMUS
     Dosage: UNK
     Dates: start: 20201006
  6. EVEROLIMUS [Suspect]
     Active Substance: EVEROLIMUS
     Dosage: 5 MG

REACTIONS (5)
  - Iron deficiency anaemia [Unknown]
  - Cytopenia [Unknown]
  - Blood pressure inadequately controlled [Unknown]
  - Fatigue [Unknown]
  - Condition aggravated [Unknown]
